FAERS Safety Report 19041946 (Version 1)
Quarter: 2021Q1

REPORT INFORMATION
  Report Type: Spontaneous
  Country: TR (occurrence: TR)
  Receive Date: 20210323
  Receipt Date: 20210323
  Transmission Date: 20210420
  Serious: Yes (Other)
  Sender: FDA-Public Use
  Company Number: NVSC2021TR059673

PATIENT
  Age: 68 Year
  Sex: Female

DRUGS (1)
  1. ONEPTUS [Suspect]
     Active Substance: SACUBITRIL\VALSARTAN
     Indication: HYPONATRAEMIA
     Dosage: 50 MG, BID
     Route: 048

REACTIONS (3)
  - Product use in unapproved indication [Not Recovered/Not Resolved]
  - Product supply issue [Not Recovered/Not Resolved]
  - Tachycardia [Not Recovered/Not Resolved]
